FAERS Safety Report 6435429-3 (Version None)
Quarter: 2009Q4

REPORT INFORMATION
  Report Type: 
  Country: None (occurrence: None)
  Receive Date: 20091106
  Receipt Date: 20091026
  Transmission Date: 20100525
  Serious: Yes (Other)
  Sender: FDA-Public Use
  Company Number: TRP_06544_2009

PATIENT
  Sex: Female

DRUGS (4)
  1. RIBASPHERE [Suspect]
     Indication: HEPATITIS C
     Dosage: 1200 MG, DAILY ORAL
     Route: 048
     Dates: start: 20090907, end: 20090928
  2. PEGASYS [Suspect]
     Indication: HEPATITIS C
     Dosage: 180 UG 1X/WEEK SUBCUTANEOUS
     Route: 058
     Dates: start: 20090907, end: 20090928
  3. PRILOSEC [Concomitant]
  4. TUMS [Concomitant]

REACTIONS (7)
  - CONVULSION [None]
  - DIARRHOEA [None]
  - FALL [None]
  - FATIGUE [None]
  - HEADACHE [None]
  - PLATELET COUNT DECREASED [None]
  - SYNCOPE [None]
